FAERS Safety Report 9192304 (Version 1)
Quarter: 2013Q1

REPORT INFORMATION
  Report Type: Spontaneous
  Country: US (occurrence: US)
  Receive Date: 20130327
  Receipt Date: 20130327
  Transmission Date: 20140127
  Serious: No
  Sender: FDA-Public Use
  Company Number: US-JNJFOC-20130310777

PATIENT
  Sex: Male
  Weight: 78.02 kg

DRUGS (1)
  1. DURAGESIC [Suspect]
     Indication: GANGRENE
     Route: 062
     Dates: start: 20130313

REACTIONS (1)
  - Drug dose omission [Not Recovered/Not Resolved]
